FAERS Safety Report 14273549 (Version 1)
Quarter: 2017Q4

REPORT INFORMATION
  Report Type: Spontaneous
  Country: JP (occurrence: JP)
  Receive Date: 20171211
  Receipt Date: 20171211
  Transmission Date: 20180321
  Serious: Yes (Death, Hospitalization, Other)
  Sender: FDA-Public Use
  Company Number: JP-ROCHE-2025028

PATIENT
  Age: 82 Year
  Sex: Female
  Weight: 37 kg

DRUGS (9)
  1. IRINOTECAN HYDROCHLORIDE. [Suspect]
     Active Substance: IRINOTECAN HYDROCHLORIDE
     Indication: RECTAL CANCER
     Dosage: IRINOTECAN HYDROCHLORIDE HYDRATE
     Route: 041
     Dates: start: 20170126
  2. CALCIUM LEVOFOLINATE [Suspect]
     Active Substance: LEVOLEUCOVORIN CALCIUM
     Indication: RECTAL CANCER
     Dosage: DOSAGE IS UNCERTAIN.
     Route: 041
     Dates: start: 20160414, end: 20160929
  3. OXALIPLATIN. [Suspect]
     Active Substance: OXALIPLATIN
     Indication: RECTAL CANCER
     Dosage: MOST RECENT DOSE ON 29/SEP/2016
     Route: 041
     Dates: start: 20160414
  4. FLUOROURACIL. [Suspect]
     Active Substance: FLUOROURACIL
     Dosage: DOSAGE IS UNCERTAIN.
     Route: 040
     Dates: start: 20170126
  5. FLUOROURACIL. [Suspect]
     Active Substance: FLUOROURACIL
     Indication: RECTAL CANCER
     Dosage: DOSAGE IS UNCERTAIN.
     Route: 041
     Dates: start: 20160414, end: 20160929
  6. AVASTIN [Suspect]
     Active Substance: BEVACIZUMAB
     Indication: RECTAL CANCER
     Dosage: MOST RECENT DOSE ON 29/SEP/2016
     Route: 041
     Dates: start: 20160414
  7. FLUOROURACIL. [Suspect]
     Active Substance: FLUOROURACIL
     Dosage: DOSAGE IS UNCERTAIN.
     Route: 041
     Dates: start: 20170126
  8. CALCIUM LEVOFOLINATE [Suspect]
     Active Substance: LEVOLEUCOVORIN CALCIUM
     Dosage: DOSAGE IS UNCERTAIN.
     Route: 041
     Dates: start: 20170126
  9. IRINOTECAN HYDROCHLORIDE. [Suspect]
     Active Substance: IRINOTECAN HYDROCHLORIDE
     Dosage: IRINOTECAN HYDROCHLORIDE HYDRATE
     Route: 041
     Dates: start: 20170511, end: 20170921

REACTIONS (5)
  - Cerebral ventricular rupture [Unknown]
  - Subarachnoid haemorrhage [Unknown]
  - Cerebral haemorrhage [Fatal]
  - Stomatitis [Recovering/Resolving]
  - Brain neoplasm [Unknown]

NARRATIVE: CASE EVENT DATE: 20170412
